FAERS Safety Report 14252436 (Version 2)
Quarter: 2017Q4

REPORT INFORMATION
  Report Type: Spontaneous
  Country: US (occurrence: US)
  Receive Date: 20171205
  Receipt Date: 20171212
  Transmission Date: 20180321
  Serious: Yes (Hospitalization)
  Sender: FDA-Public Use
  Company Number: US-FRESENIUS MEDICAL CARE RENAL THERAPIES GROUP-FMC-1712-001507

PATIENT
  Age: 76 Year
  Sex: Female

DRUGS (13)
  1. CHOLECALCIFEROL [Concomitant]
     Active Substance: CHOLECALCIFEROL
  2. ASCORBIC ACID. [Concomitant]
     Active Substance: ASCORBIC ACID
  3. HYDROCHLOROTHIAZIDE. [Concomitant]
     Active Substance: HYDROCHLOROTHIAZIDE
  4. DELFLEX [Suspect]
     Active Substance: CALCIUM CHLORIDE\DEXTROSE\MAGNESIUM CHLORIDE\SODIUM CHLORIDE\SODIUM LACTATE
     Indication: END STAGE RENAL DISEASE
     Dosage: 5 FILL VOLUMES, TOTAL VOLUME - 9700ML,FIRST FILL VOLUME =2500ML AND TIDAL FILL VOLUME =1800ML.
     Route: 033
  5. AMLODIPINE [Concomitant]
     Active Substance: AMLODIPINE BESYLATE
  6. CLONIDINE. [Concomitant]
     Active Substance: CLONIDINE
  7. HYDRALAZINE [Concomitant]
     Active Substance: HYDRALAZINE HYDROCHLORIDE
  8. MIRALAX [Concomitant]
     Active Substance: POLYETHYLENE GLYCOL 3350
  9. SENSIPAR [Concomitant]
     Active Substance: CINACALCET HYDROCHLORIDE
  10. GENTAMICIN. [Concomitant]
     Active Substance: GENTAMICIN
  11. FUROSEMIDE. [Concomitant]
     Active Substance: FUROSEMIDE
  12. RENVELA [Concomitant]
     Active Substance: SEVELAMER CARBONATE
  13. HUMALOG [Concomitant]
     Active Substance: INSULIN LISPRO

REACTIONS (2)
  - Cardiac failure acute [Recovered/Resolved]
  - Acute myocardial infarction [Recovered/Resolved]

NARRATIVE: CASE EVENT DATE: 20171125
